FAERS Safety Report 8309493-0 (Version None)
Quarter: 2012Q2

REPORT INFORMATION
  Report Type: 
  Country: None (occurrence: None)
  Receive Date: 20120425
  Receipt Date: 20120419
  Transmission Date: 20120825
  Serious: No
  Sender: FDA-Public Use
  Company Number: US-PFIZER INC-2012097914

PATIENT
  Sex: Female
  Weight: 77 kg

DRUGS (4)
  1. DOXAZOSIN [Concomitant]
     Indication: BLOOD PRESSURE ABNORMAL
     Dosage: 1 MG, DAILY
  2. NEURONTIN [Suspect]
     Dosage: 600 MG, DAILY AT BED TIME
     Dates: start: 20120401
  3. DIOVAN [Concomitant]
     Indication: BLOOD PRESSURE ABNORMAL
     Dosage: 325 MG, DAILY
  4. NEURONTIN [Suspect]
     Indication: NEURALGIA
     Dosage: 100MG THREE TIMES DURING THE DAY AND 200MG AT BEDTIME
     Dates: start: 20120409

REACTIONS (2)
  - SPONDYLITIS [None]
  - DYSKINESIA [None]
